FAERS Safety Report 16508349 (Version 2)
Quarter: 2021Q4

REPORT INFORMATION
  Report Type: Spontaneous
  Country: CA (occurrence: CA)
  Receive Date: 20190702
  Receipt Date: 20211124
  Transmission Date: 20220303
  Serious: Yes (Hospitalization, Other)
  Sender: FDA-Public Use
  Company Number: CA-SAMSUNG BIOEPIS-SB-2019-16301

PATIENT
  Age: 38 Year
  Sex: Female

DRUGS (2)
  1. INFLIXIMAB [Suspect]
     Active Substance: INFLIXIMAB
     Indication: Crohn^s disease
     Route: 042
  2. INFLIXIMAB [Suspect]
     Active Substance: INFLIXIMAB
     Route: 041

REACTIONS (21)
  - Abdominal pain [Unknown]
  - Diarrhoea [Unknown]
  - Fall [Unknown]
  - Gait inability [Unknown]
  - Muscular weakness [Unknown]
  - Pain [Unknown]
  - Arthralgia [Unknown]
  - Blood pressure increased [Unknown]
  - Condition aggravated [Unknown]
  - Cyanosis [Unknown]
  - Dyspnoea [Unknown]
  - Feeling hot [Unknown]
  - Heart rate increased [Unknown]
  - Hyperhidrosis [Unknown]
  - Oxygen saturation abnormal [Unknown]
  - Pulmonary embolism [Unknown]
  - Somnolence [Unknown]
  - Poor venous access [Unknown]
  - Tachycardia [Unknown]
  - Off label use [Unknown]
  - Intentional product use issue [Unknown]
